FAERS Safety Report 6257590-6 (Version None)
Quarter: 2009Q3

REPORT INFORMATION
  Report Type: 
  Country: None (occurrence: None)
  Receive Date: 20090706
  Receipt Date: 20090629
  Transmission Date: 20100115
  Serious: Yes (Death, Hospitalization)
  Sender: FDA-Public Use
  Company Number: MX-ROCHE-559034

PATIENT
  Sex: Female
  Weight: 66.5 kg

DRUGS (1)
  1. CAPECITABINE [Suspect]
     Indication: BREAST CANCER
     Dosage: DOSAGE FORM REPORTED: 500 MG.
     Route: 048
     Dates: start: 20080311

REACTIONS (4)
  - DISORIENTATION [None]
  - METASTASES TO NERVOUS SYSTEM [None]
  - METASTASIS [None]
  - SOMNOLENCE [None]
